FAERS Safety Report 6114711-3 (Version None)
Quarter: 2009Q1

REPORT INFORMATION
  Report Type: 
  Country: None (occurrence: None)
  Receive Date: 20090313
  Receipt Date: 20090304
  Transmission Date: 20090719
  Serious: Yes (Hospitalization)
  Sender: FDA-Public Use
  Company Number: PHHY2009SE07888

PATIENT
  Sex: Male

DRUGS (10)
  1. TEGRETOL [Interacting]
     Dosage: 1.2GMD
  2. TEGRETOL [Interacting]
     Dosage: UNK
  3. LITHIUM CARBONATE [Suspect]
     Dosage: 60DFD
  4. LAMICTAL [Concomitant]
  5. LACTULOSE [Concomitant]
  6. ACETAMINOPHEN [Concomitant]
     Dosage: 500 MG, UNK
  7. THERALEN [Concomitant]
     Route: 048
  8. SOBRIL [Concomitant]
  9. OXASCAND [Concomitant]
     Dosage: 10 MG, UNK
  10. ZYPREXA [Concomitant]

REACTIONS (4)
  - DIPLOPIA [None]
  - DIZZINESS [None]
  - DRUG TOXICITY [None]
  - WERNICKE'S ENCEPHALOPATHY [None]
